FAERS Safety Report 24416875 (Version 1)
Quarter: 2024Q4

REPORT INFORMATION
  Report Type: Spontaneous
  Country: US (occurrence: US)
  Receive Date: 20241009
  Receipt Date: 20241009
  Transmission Date: 20250115
  Serious: No
  Sender: CB FLEET
  Company Number: US-PRESTIGE-202404-US-000905

PATIENT
  Sex: Female

DRUGS (4)
  1. MONISTAT 1 COMBINATION PACK [Suspect]
     Active Substance: MICONAZOLE NITRATE
     Indication: Fungal infection
     Dosage: ONCE
     Route: 067
  2. MONISTAT 1 COMBINATION PACK [Suspect]
     Active Substance: MICONAZOLE NITRATE
     Route: 067
  3. MONISTAT 3 [Suspect]
     Active Substance: MICONAZOLE NITRATE
     Indication: Fungal infection
     Dosage: ONCE
     Route: 067
  4. MONISTAT 3 [Suspect]
     Active Substance: MICONAZOLE NITRATE
     Route: 067

REACTIONS (3)
  - Vulvovaginal injury [Recovering/Resolving]
  - Vulvovaginal pain [Recovering/Resolving]
  - Product complaint [Unknown]
